FAERS Safety Report 5351680-8 (Version None)
Quarter: 2007Q2

REPORT INFORMATION
  Report Type: 
  Country: None (occurrence: None)
  Receive Date: 20070518
  Receipt Date: 20070424
  Transmission Date: 20071010
  Serious: No
  Sender: FDA-Public Use
  Company Number: TPA2007A00203

PATIENT
  Age: 72 Year
  Sex: Male
  Weight: 74.8435 kg

DRUGS (5)
  1. ROZEREM [Suspect]
     Dosage: PER ORAL
     Route: 048
  2. INSPRA [Concomitant]
  3. AVAPRO [Concomitant]
  4. NIFEDIPINE [Concomitant]
  5. PREDNISONE TAB [Concomitant]

REACTIONS (1)
  - POOR QUALITY SLEEP [None]
